FAERS Safety Report 7633667-5 (Version None)
Quarter: 2011Q3

REPORT INFORMATION
  Report Type: 
  Country: None (occurrence: None)
  Receive Date: 20110725
  Receipt Date: 20110713
  Transmission Date: 20111222
  Serious: Yes (Hospitalization, Disabling)
  Sender: FDA-Public Use
  Company Number: JP-GLAXOSMITHKLINE-B0722963A

PATIENT
  Age: 26 Year
  Sex: Female

DRUGS (8)
  1. CLONAZEPAM [Concomitant]
     Dosage: .5MG PER DAY
     Route: 048
     Dates: start: 20110425, end: 20110508
  2. LAMICTAL [Suspect]
     Dosage: 25MG PER DAY
     Route: 048
  3. MAGNESIUM OXIDE [Concomitant]
     Dosage: 3IUAX PER DAY
     Route: 048
     Dates: start: 20110329, end: 20110508
  4. LAMICTAL [Suspect]
     Dosage: 100MG PER DAY
     Route: 048
     Dates: end: 20110510
  5. LAMICTAL [Suspect]
     Indication: EPILEPSY
     Dosage: 25MG ALTERNATE DAYS
     Route: 048
     Dates: start: 20110314
  6. DEPAKENE [Suspect]
     Dosage: 24ML PER DAY
     Route: 048
     Dates: start: 20110315, end: 20110510
  7. FAMOTIDINE [Concomitant]
     Dosage: 10MG PER DAY
     Route: 048
     Dates: start: 20110302, end: 20110508
  8. BIO THREE [Concomitant]
     Dosage: 3IUAX PER DAY
     Route: 048
     Dates: start: 20110320, end: 20110508

REACTIONS (10)
  - DRUG ERUPTION [None]
  - CYTOMEGALOVIRUS INFECTION [None]
  - HUMAN HERPESVIRUS 6 INFECTION [None]
  - EPSTEIN-BARR VIRUS INFECTION [None]
  - ERYTHEMA [None]
  - HEPATIC FUNCTION ABNORMAL [None]
  - INFLAMMATORY MARKER INCREASED [None]
  - LYMPHADENOPATHY [None]
  - PYREXIA [None]
  - RASH [None]
